FAERS Safety Report 5811565-7 (Version None)
Quarter: 2008Q3

REPORT INFORMATION
  Report Type: 
  Country: None (occurrence: None)
  Receive Date: 20080716
  Receipt Date: 20080710
  Transmission Date: 20090109
  Serious: Yes (Disabling)
  Sender: FDA-Public Use
  Company Number: AU-MERCK-0807AUS00156

PATIENT
  Age: 79 Year
  Sex: Male
  Weight: 98 kg

DRUGS (1)
  1. VYTORIN [Suspect]
     Route: 048
     Dates: start: 20071101, end: 20071102

REACTIONS (4)
  - HEART RATE IRREGULAR [None]
  - HYPERHIDROSIS [None]
  - MALAISE [None]
  - PAIN IN JAW [None]
